FAERS Safety Report 18890441 (Version 1)
Quarter: 2021Q1

REPORT INFORMATION
  Report Type: Report from Study
  Country: US (occurrence: US)
  Receive Date: 20210214
  Receipt Date: 20210214
  Transmission Date: 20210420
  Serious: No
  Sender: FDA-Public Use
  Company Number: NVSC2021US030141

PATIENT

DRUGS (1)
  1. COSENTYX [Suspect]
     Active Substance: SECUKINUMAB
     Indication: PSORIASIS
     Dosage: 300 MG, QMO, SUBCUTANEOUS ? BENEATH THE SKIN, USUALLY VIA INJECTION
     Route: 058

REACTIONS (1)
  - COVID-19 [Recovered/Resolved]
